FAERS Safety Report 6385989-6 (Version None)
Quarter: 2009Q4

REPORT INFORMATION
  Report Type: 
  Country: None (occurrence: None)
  Receive Date: 20091002
  Receipt Date: 20081024
  Transmission Date: 20100525
  Serious: No
  Sender: FDA-Public Use
  Company Number: US-ASTRAZENECA-2008UW23961

PATIENT
  Age: 62 Year
  Sex: Female

DRUGS (6)
  1. ARIMIDEX [Suspect]
     Route: 048
     Dates: start: 20060701
  2. ALBUTEROL [Concomitant]
  3. AZMACORT [Concomitant]
  4. NASACORT [Concomitant]
  5. INTAL [Concomitant]
  6. VITAMIN D [Concomitant]

REACTIONS (7)
  - BONE DENSITY DECREASED [None]
  - CONTUSION [None]
  - DYSPNOEA [None]
  - EPISTAXIS [None]
  - HYPOAESTHESIA [None]
  - NAUSEA [None]
  - PARAESTHESIA [None]
